FAERS Safety Report 25778215 (Version 1)
Quarter: 2025Q3

REPORT INFORMATION
  Report Type: Report from Study
  Country: US (occurrence: US)
  Receive Date: 20250909
  Receipt Date: 20250909
  Transmission Date: 20251021
  Serious: No
  Sender: SUNOVION
  Company Number: US-SUMITOMO PHARMA SWITZERLAND GMBH-2024SPA000375

PATIENT
  Age: 56 Year
  Sex: Male

DRUGS (9)
  1. ORGOVYX [Suspect]
     Active Substance: RELUGOLIX
     Indication: Prostate cancer
     Dosage: 360 MG, SINGLE
     Route: 048
  2. ORGOVYX [Suspect]
     Active Substance: RELUGOLIX
     Dosage: 120 MG, QD
     Route: 048
  3. CALCIUM [Concomitant]
     Active Substance: CALCIUM
  4. IBUPROFEN [Concomitant]
     Active Substance: IBUPROFEN
  5. VITAMINS [Concomitant]
     Active Substance: VITAMINS
  6. NUBEQA [Concomitant]
     Active Substance: DAROLUTAMIDE
  7. TADALAFIL [Concomitant]
     Active Substance: TADALAFIL
  8. TAMSULOSIN [Concomitant]
     Active Substance: TAMSULOSIN
  9. TYLENOL 8HR [Concomitant]
     Active Substance: ACETAMINOPHEN

REACTIONS (4)
  - Weight increased [Unknown]
  - Hot flush [Unknown]
  - Libido decreased [Unknown]
  - Product dose omission issue [Recovered/Resolved]
